FAERS Safety Report 21312584 (Version 1)
Quarter: 2022Q3

REPORT INFORMATION
  Report Type: Spontaneous
  Country: US (occurrence: None)
  Receive Date: 20220909
  Receipt Date: 20220909
  Transmission Date: 20221027
  Serious: No
  Sender: FDA-Public Use
  Company Number: US-ARIS GLOBAL-202207-1222

PATIENT
  Sex: Female
  Weight: 98.790 kg

DRUGS (12)
  1. OXERVATE [Suspect]
     Active Substance: CENEGERMIN-BKBJ
     Indication: Neurotrophic keratopathy
     Route: 047
     Dates: start: 20220627
  2. CILOSTAZOL [Concomitant]
     Active Substance: CILOSTAZOL
  3. METOPROLOL SUCCINATE [Concomitant]
     Active Substance: METOPROLOL SUCCINATE
  4. MULTI-DAY PLUS IRON [Concomitant]
  5. OMEGA-3-FISH OIL-VIT D3 [Concomitant]
  6. FLUOXETINE HYDROCHLORIDE [Concomitant]
     Active Substance: FLUOXETINE HYDROCHLORIDE
  7. LISINOPRIL [Concomitant]
     Active Substance: LISINOPRIL
  8. IBUPROFEN [Concomitant]
     Active Substance: IBUPROFEN
  9. DULOXETINE HYDROCHLORIDE [Concomitant]
     Active Substance: DULOXETINE HYDROCHLORIDE
     Dosage: DELAYED RELEASE
  10. LOPERAMIDE [Concomitant]
     Active Substance: LOPERAMIDE
  11. GABAPENTIN [Concomitant]
     Active Substance: GABAPENTIN
  12. IVIZIA [Concomitant]
     Active Substance: POVIDONE

REACTIONS (2)
  - Wrong technique in product usage process [Recovered/Resolved]
  - Facial pain [Unknown]
